FAERS Safety Report 12286981 (Version 2)
Quarter: 2016Q4

REPORT INFORMATION
  Report Type: Spontaneous
  Country: JP (occurrence: JP)
  Receive Date: 20160420
  Receipt Date: 20161007
  Transmission Date: 20170207
  Serious: Yes (Death, Other)
  Sender: FDA-Public Use
  Company Number: JP-SEATTLE GENETICS-2016SGN00611

PATIENT

DRUGS (11)
  1. NAIXAN                             /00256201/ [Concomitant]
     Active Substance: NAPROXEN
     Indication: ANTIPYRESIS
     Dosage: 100 MG, TID
     Route: 048
     Dates: start: 20160402, end: 20160414
  2. MAGMITT [Concomitant]
     Active Substance: MAGNESIUM OXIDE
     Indication: CONSTIPATION
     Dosage: 330 MG, TID
     Route: 048
     Dates: start: 20160305, end: 20160414
  3. ADCETRIS [Suspect]
     Active Substance: BRENTUXIMAB VEDOTIN
     Dosage: 70 MG, Q3WEEKS
     Route: 041
     Dates: start: 20160414, end: 20160414
  4. PREDNISOLONE. [Concomitant]
     Active Substance: PREDNISOLONE
     Indication: ANTIPYRESIS
     Dosage: 5 MG, QD
     Route: 048
     Dates: start: 20160317, end: 20160414
  5. SHAKUYAKUKANZOTO [Concomitant]
     Active Substance: HERBALS
     Indication: HICCUPS
     Dosage: 7.5 G, TID
     Route: 048
     Dates: start: 20160317, end: 20160414
  6. DECADRON                           /00016002/ [Concomitant]
     Active Substance: DEXAMETHASONE
     Indication: ALLERGY PROPHYLAXIS
     Dosage: 2 MG, QD
     Route: 041
     Dates: start: 20160414, end: 20160414
  7. PREDNISOLONE. [Concomitant]
     Active Substance: PREDNISOLONE
     Indication: HODGKIN^S DISEASE
  8. FAMOTIDINE. [Concomitant]
     Active Substance: FAMOTIDINE
     Indication: PROPHYLAXIS AGAINST GASTROINTESTINAL ULCER
     Dosage: 20 MG, BID
     Route: 048
     Dates: start: 20160317, end: 20160414
  9. ADCETRIS [Suspect]
     Active Substance: BRENTUXIMAB VEDOTIN
     Indication: HODGKIN^S DISEASE
     Dosage: 1.8 MG/KG, Q21D
     Route: 041
     Dates: start: 201603, end: 201604
  10. SOLDEM [Concomitant]
     Active Substance: DEXTROSE\POTASSIUM CHLORIDE\SODIUM CHLORIDE\SODIUM LACTATE
     Dosage: 1500 ML, QD
     Route: 041
     Dates: start: 20160413, end: 20160414
  11. ADCETRIS [Suspect]
     Active Substance: BRENTUXIMAB VEDOTIN
     Dosage: 95 MG, Q3WEEKS
     Route: 041
     Dates: start: 20160316, end: 20160316

REACTIONS (12)
  - Fall [Recovered/Resolved]
  - Interstitial lung disease [Unknown]
  - Abdominal pain [Unknown]
  - Procalcitonin increased [Unknown]
  - Disseminated intravascular coagulation [Unknown]
  - Decreased appetite [Unknown]
  - Haematuria [Recovered/Resolved]
  - Hepatic function abnormal [Unknown]
  - Anaphylactoid reaction [Unknown]
  - Cerebral haemorrhage [Fatal]
  - Multiple organ dysfunction syndrome [Unknown]
  - Malaise [Unknown]

NARRATIVE: CASE EVENT DATE: 20160326
